FAERS Safety Report 15053835 (Version 1)
Quarter: 2018Q2

REPORT INFORMATION
  Report Type: Spontaneous
  Country: US (occurrence: US)
  Receive Date: 20180622
  Receipt Date: 20180622
  Transmission Date: 20180711
  Serious: Yes (Hospitalization)
  Sender: FDA-Public Use
  Company Number: US-CELGENEUS-USA-20180606191

PATIENT
  Sex: Female

DRUGS (3)
  1. THALOMID [Suspect]
     Active Substance: THALIDOMIDE
     Indication: LEPROMATOUS LEPROSY
     Dosage: 50 MILLIGRAM
     Route: 048
     Dates: start: 201608
  2. THALOMID [Suspect]
     Active Substance: THALIDOMIDE
     Dosage: 50 MILLIGRAM
     Route: 048
     Dates: start: 201708
  3. THALOMID [Suspect]
     Active Substance: THALIDOMIDE
     Dosage: 50MG -100MG
     Route: 048
     Dates: start: 20170216

REACTIONS (1)
  - Diabetes mellitus [Recovered/Resolved]
